FAERS Safety Report 5130269-X (Version None)
Quarter: 2006Q4

REPORT INFORMATION
  Report Type: 
  Country: None (occurrence: None)
  Receive Date: 20061018
  Receipt Date: 20061018
  Transmission Date: 20070319
  Serious: Yes (Life-Threatening)
  Sender: FDA-Public Use
  Company Number: None

PATIENT
  Sex: Male

DRUGS (1)
  1. VYTORIN [Suspect]
     Indication: CORONARY ARTERY DISEASE
     Dosage: 10/40 QD INJ
     Dates: start: 20060306, end: 20061010

REACTIONS (1)
  - RHABDOMYOLYSIS [None]
